FAERS Safety Report 4439912-1 (Version None)
Quarter: 2004Q3

REPORT INFORMATION
  Report Type: 
  Country: None (occurrence: None)
  Receive Date: 20040831
  Receipt Date: 20040818
  Transmission Date: 20050211
  Serious: Yes (Other)
  Sender: FDA-Public Use
  Company Number: M2004-1132

PATIENT
  Age: 65 Year
  Sex: Male

DRUGS (4)
  1. ISONIAZID [Suspect]
     Indication: PULMONARY TUBERCULOSIS
  2. RIMACTANE [Suspect]
     Indication: PULMONARY TUBERCULOSIS
  3. ETHAMBUTOL HCL [Concomitant]
  4. PYRAZINAMIDE [Concomitant]

REACTIONS (3)
  - INTERSTITIAL LUNG DISEASE [None]
  - LUNG INFILTRATION [None]
  - PNEUMONITIS [None]
